FAERS Safety Report 24425961 (Version 2)
Quarter: 2024Q4

REPORT INFORMATION
  Report Type: Spontaneous
  Country: JP (occurrence: JP)
  Receive Date: 20241011
  Receipt Date: 20241223
  Transmission Date: 20250115
  Serious: Yes (Death, Hospitalization, Other)
  Sender: TAKEDA
  Company Number: JP-TAKEDA-2024TJP014773

PATIENT
  Age: 64 Year
  Sex: Female
  Weight: 64 kg

DRUGS (5)
  1. TEDUGLUTIDE [Suspect]
     Active Substance: TEDUGLUTIDE
     Indication: Short-bowel syndrome
     Dosage: 3.8 MILLIGRAM, QD
     Dates: start: 20240712, end: 20240914
  2. TEDUGLUTIDE [Suspect]
     Active Substance: TEDUGLUTIDE
  3. TEDUGLUTIDE [Suspect]
     Active Substance: TEDUGLUTIDE
  4. TEDUGLUTIDE [Suspect]
     Active Substance: TEDUGLUTIDE
  5. IRINOTECAN HYDROCHLORIDE [Concomitant]
     Active Substance: IRINOTECAN HYDROCHLORIDE
     Indication: Ovarian cancer
     Dosage: 1.1 MILLIGRAM
     Dates: start: 20240624, end: 20240827

REACTIONS (2)
  - Pneumonia aspiration [Unknown]
  - Ovarian cancer [Fatal]

NARRATIVE: CASE EVENT DATE: 20240916
